FAERS Safety Report 5293974-0 (Version None)
Quarter: 2007Q2

REPORT INFORMATION
  Report Type: 
  Country: None (occurrence: None)
  Receive Date: 20070405
  Receipt Date: 20070327
  Transmission Date: 20071010
  Serious: Yes (Hospitalization)
  Sender: FDA-Public Use
  Company Number: 2007SP003237

PATIENT
  Age: 46 Year
  Sex: Female
  Weight: 60.782 kg

DRUGS (5)
  1. PEG-INTRON [Suspect]
     Indication: HEPATITIS C
     Dosage: ; QW; SC
     Route: 058
     Dates: start: 20060203, end: 20061229
  2. REBETOL [Suspect]
     Indication: HEPATITIS C
     Dosage: 1000 MG; QD; PO
     Route: 048
     Dates: start: 20060203, end: 20061229
  3. VITAMIN B [Concomitant]
  4. IRON [Concomitant]
  5. VITAMIN E [Concomitant]

REACTIONS (21)
  - CSF CULTURE POSITIVE [None]
  - DYSPHONIA [None]
  - DYSPNOEA [None]
  - ENCEPHALITIS VIRAL [None]
  - EPSTEIN-BARR VIRUS INFECTION [None]
  - FAECAL INCONTINENCE [None]
  - HEADACHE [None]
  - HEMIPARESIS [None]
  - HEPATITIS C [None]
  - HYPERREFLEXIA [None]
  - HYPOAESTHESIA [None]
  - MUSCULOSKELETAL PAIN [None]
  - MUSCULOSKELETAL STIFFNESS [None]
  - MYELITIS [None]
  - NECK PAIN [None]
  - NEURALGIA [None]
  - NEUROLOGICAL INFECTION [None]
  - PARAESTHESIA [None]
  - QUADRIPARESIS [None]
  - TOXOPLASMOSIS [None]
  - VOMITING [None]
